FAERS Safety Report 9644035 (Version 1)
Quarter: 2013Q4

REPORT INFORMATION
  Report Type: Spontaneous
  Country: GB (occurrence: GB)
  Receive Date: 20131024
  Receipt Date: 20131024
  Transmission Date: 20140711
  Serious: Yes (Life-Threatening, Hospitalization, Disabling)
  Sender: FDA-Public Use
  Company Number: PHHY2013GB116159

PATIENT
  Age: 71 Year
  Sex: Male

DRUGS (6)
  1. ATORVASTATIN [Suspect]
     Indication: HYPERCHOLESTEROLAEMIA
     Dosage: 40 MG, QD, AT NIGHT
     Route: 048
     Dates: start: 20120701, end: 20130928
  2. LANSOPRAZOLE [Suspect]
     Indication: GASTRITIS
     Dosage: 30 MG, QD
     Route: 048
     Dates: start: 2010
  3. FOLATE [Concomitant]
     Dosage: 5 MG, QD
  4. TIOTROPIUM [Concomitant]
     Dosage: 18 UG, QD
  5. PARACETAMOL [Concomitant]
     Dosage: 1 G, UNK
  6. BETAHISTINE [Concomitant]
     Dosage: 16 MG, TID

REACTIONS (4)
  - Thrombotic thrombocytopenic purpura [Recovering/Resolving]
  - Neurological symptom [Recovering/Resolving]
  - Renal failure acute [Recovering/Resolving]
  - Confusional state [Recovering/Resolving]
